FAERS Safety Report 6478044-8 (Version None)
Quarter: 2009Q4

REPORT INFORMATION
  Report Type: 
  Country: None (occurrence: None)
  Receive Date: 20091207
  Receipt Date: 20091127
  Transmission Date: 20100525
  Serious: Yes (Life-Threatening, Hospitalization)
  Sender: FDA-Public Use
  Company Number: FR-ABBOTT-09P-056-0579775-00

PATIENT
  Sex: Female

DRUGS (4)
  1. HUMIRA [Suspect]
     Indication: RHEUMATOID ARTHRITIS
     Route: 058
     Dates: start: 20090501
  2. CEBUTID [Suspect]
     Indication: RHEUMATOID ARTHRITIS
     Route: 048
     Dates: end: 20090601
  3. CORTANCYL [Concomitant]
     Indication: RHEUMATOID ARTHRITIS
  4. CORTICOSTEROIDS [Concomitant]
     Indication: RHEUMATOID ARTHRITIS
     Dates: start: 20090301

REACTIONS (6)
  - DIVERTICULUM [None]
  - INTESTINAL PERFORATION [None]
  - OVARIAN MASS [None]
  - PERITONITIS [None]
  - RENAL FAILURE [None]
  - SEPTIC SHOCK [None]
